FAERS Safety Report 20469759 (Version 1)
Quarter: 2022Q1

REPORT INFORMATION
  Report Type: Spontaneous
  Country: US (occurrence: None)
  Receive Date: 20220213
  Receipt Date: 20220213
  Transmission Date: 20220424
  Serious: No
  Sender: FDA-Public Use
  Company Number: None

PATIENT
  Age: 58 Year
  Sex: Female
  Weight: 47.25 kg

DRUGS (2)
  1. AVOBENZONE\OCTOCRYLENE [Suspect]
     Active Substance: AVOBENZONE\OCTOCRYLENE
     Indication: Skin disorder
     Dosage: FREQUENCY : AS NEEDED;?
     Route: 061
     Dates: start: 20220212, end: 20220213
  2. VITAMIN B12 [Concomitant]
     Active Substance: CYANOCOBALAMIN

REACTIONS (4)
  - Application site swelling [None]
  - Application site erythema [None]
  - Application site rash [None]
  - Application site pain [None]

NARRATIVE: CASE EVENT DATE: 20220213
